FAERS Safety Report 16589924 (Version 2)
Quarter: 2019Q3

REPORT INFORMATION
  Report Type: Spontaneous
  Country: HU (occurrence: HU)
  Receive Date: 20190718
  Receipt Date: 20190728
  Transmission Date: 20191004
  Serious: Yes (Death, Hospitalization)
  Sender: FDA-Public Use
  Company Number: HU-009507513-1907HUN003992

PATIENT
  Age: 75 Year
  Sex: Female

DRUGS (8)
  1. IMIPENEM AND CILASTATIN [Suspect]
     Active Substance: CILASTATIN SODIUM\IMIPENEM
     Indication: KLEBSIELLA INFECTION
     Dosage: 1 G, 3X
     Route: 042
     Dates: start: 20190327, end: 20190330
  2. NOREPINEPHRINE. [Suspect]
     Active Substance: NOREPINEPHRINE
     Indication: HYPOTENSION
     Dosage: 0.6 UG/KG, (0.6 UG/KG/MIN)
     Route: 042
     Dates: start: 20190312, end: 20190318
  3. COLOMYCIN (COLISTIN SULFATE) [Suspect]
     Active Substance: COLISTIN SULFATE
     Indication: ACINETOBACTER INFECTION
     Dosage: 3X3 MU
     Route: 042
     Dates: start: 20190328, end: 20190330
  4. TIGECYCLINE. [Suspect]
     Active Substance: TIGECYCLINE
     Indication: ACINETOBACTER INFECTION
  5. IMIPENEM AND CILASTATIN [Suspect]
     Active Substance: CILASTATIN SODIUM\IMIPENEM
     Indication: ENTEROCOCCAL INFECTION
  6. TIGECYCLINE. [Suspect]
     Active Substance: TIGECYCLINE
     Indication: ENTEROCOCCAL INFECTION
     Dosage: 100 MG (2 OF 50 MG DAILY)
     Route: 042
     Dates: start: 20190327, end: 20190330
  7. NOREPINEPHRINE. [Suspect]
     Active Substance: NOREPINEPHRINE
     Dosage: 0.6 UG/KG, (0.6 UG/KG/MIN)
     Route: 042
     Dates: start: 20190329, end: 20190330
  8. TIGECYCLINE. [Suspect]
     Active Substance: TIGECYCLINE
     Indication: KLEBSIELLA INFECTION

REACTIONS (5)
  - Acinetobacter infection [Fatal]
  - Acute pulmonary oedema [Fatal]
  - Pneumonia [Fatal]
  - Acute respiratory distress syndrome [Fatal]
  - Condition aggravated [Fatal]
